FAERS Safety Report 6524767-1 (Version None)
Quarter: 2010Q1

REPORT INFORMATION
  Report Type: 
  Country: None (occurrence: None)
  Receive Date: 20100104
  Receipt Date: 20091221
  Transmission Date: 20100710
  Serious: Yes (Other)
  Sender: FDA-Public Use
  Company Number: NL-PFIZER INC-2009313384

PATIENT
  Age: 13 Year
  Sex: Male

DRUGS (7)
  1. VORICONAZOLE [Suspect]
     Indication: ASPERGILLOSIS
     Route: 042
  2. CHEMOTHERAPY NOS [Concomitant]
     Indication: ACUTE LYMPHOCYTIC LEUKAEMIA
  3. AZITHROMYCIN [Concomitant]
     Indication: BONE MARROW FAILURE
  4. CEFTAZIDIME [Concomitant]
     Indication: BONE MARROW FAILURE
  5. VANCOMYCIN [Concomitant]
     Indication: BONE MARROW FAILURE
  6. AMPHOTERICINE B, LIPOSOME [Concomitant]
     Indication: ASPERGILLOSIS
  7. CASPOFUNGIN [Concomitant]
     Indication: ASPERGILLOSIS

REACTIONS (1)
  - DRUG RESISTANCE [None]
